FAERS Safety Report 5226394-5 (Version None)
Quarter: 2007Q1

REPORT INFORMATION
  Report Type: 
  Country: None (occurrence: None)
  Receive Date: 20070201
  Receipt Date: 20070119
  Transmission Date: 20070707
  Serious: Yes (Other)
  Sender: FDA-Public Use
  Company Number: CA-ELI_LILLY_AND_COMPANY-CA200701004299

PATIENT
  Age: 66 Year
  Sex: Female

DRUGS (7)
  1. FORTEO [Suspect]
     Indication: OSTEOPOROSIS
     Dosage: 20 UG, DAILY (1/D)
     Route: 058
     Dates: start: 20070117
  2. OXYCONTIN [Concomitant]
  3. NEURONTIN [Concomitant]
  4. NAPROXEN [Concomitant]
  5. SUPEUDOL [Concomitant]
  6. PANTOPRAZOLE SODIUM [Concomitant]
  7. CALCIUM [Concomitant]

REACTIONS (3)
  - HYPOAESTHESIA ORAL [None]
  - PAIN IN EXTREMITY [None]
  - VISION BLURRED [None]
